FAERS Safety Report 21125058 (Version 1)
Quarter: 2022Q3

REPORT INFORMATION
  Report Type: Spontaneous
  Country: US (occurrence: US)
  Receive Date: 20220725
  Receipt Date: 20220725
  Transmission Date: 20221026
  Serious: Yes (Other)
  Sender: FDA-Public Use
  Company Number: US-drreddys-SPO/USA/22/0152549

PATIENT
  Age: 19 Year

DRUGS (1)
  1. ACCUTANE [Suspect]
     Active Substance: ISOTRETINOIN
     Indication: Product used for unknown indication
     Dosage: RMA ISSUE DATE: 26 APRIL 2022 10:03:01 AM, 24 MAY 2022 09:06:08 AM, 07 JULY 2022 10:47:57 AM

REACTIONS (2)
  - Anxiety [Unknown]
  - Depression [Unknown]
